FAERS Safety Report 21041428 (Version 3)
Quarter: 2022Q4

REPORT INFORMATION
  Report Type: Report from Study
  Country: DE (occurrence: DE)
  Receive Date: 20220705
  Receipt Date: 20221026
  Transmission Date: 20230113
  Serious: Yes (Other)
  Sender: FDA-Public Use
  Company Number: DE-ABBVIE-22K-062-4452125-00

PATIENT
  Age: 67 Year
  Sex: Male
  Weight: 80 kg

DRUGS (2)
  1. RINVOQ [Suspect]
     Active Substance: UPADACITINIB
     Indication: Dermatitis atopic
     Dosage: LAST ADMIN DATE 2022
     Route: 048
     Dates: start: 20220329
  2. RINVOQ [Suspect]
     Active Substance: UPADACITINIB
     Indication: Dermatitis atopic
     Dosage: FIRST ADMIN DATE 2022
     Route: 048

REACTIONS (1)
  - Lung operation [Recovered/Resolved]

NARRATIVE: CASE EVENT DATE: 20220628
